FAERS Safety Report 8618734-1 (Version None)
Quarter: 2012Q3

REPORT INFORMATION
  Report Type: 
  Country: None (occurrence: None)
  Receive Date: 20120815
  Receipt Date: 20120815
  Transmission Date: 20120928
  Serious: Yes (Hospitalization)
  Sender: FDA-Public Use
  Company Number: None

PATIENT
  Sex: Female
  Weight: 87.6803 kg

DRUGS (9)
  1. XANAX [Concomitant]
  2. EMEND [Concomitant]
  3. CISPLATIN [Suspect]
     Indication: TRANSITIONAL CELL CARCINOMA
     Dosage: 70 MG/M^2 Q 2 WEEKS X3
     Dates: start: 20120712, end: 20120809
  4. COLESTIPOL HYDROCHLORIDE [Concomitant]
  5. ZOFRAN [Concomitant]
  6. NEULASTA [Concomitant]
  7. TRIAMTERENE [Concomitant]
  8. LISINOPRIL [Concomitant]
  9. GEMCITABINE HYDROCHLORIDE [Suspect]
     Indication: TRANSITIONAL CELL CARCINOMA
     Dosage: 1200 MG/M^2 Q 2 WEEKS X3
     Dates: start: 20120712, end: 20120809

REACTIONS (4)
  - ELECTROCARDIOGRAM ST-T CHANGE [None]
  - NON-CARDIAC CHEST PAIN [None]
  - MYOCARDIAL INFARCTION [None]
  - DYSPNOEA [None]
